FAERS Safety Report 10087973 (Version 2)
Quarter: 2014Q2

REPORT INFORMATION
  Report Type: Spontaneous
  Country: US (occurrence: US)
  Receive Date: 20140419
  Receipt Date: 20140501
  Transmission Date: 20141212
  Serious: Yes (Other)
  Sender: FDA-Public Use
  Company Number: US-009507513-1404USA008071

PATIENT
  Age: 19 Year
  Sex: Female

DRUGS (3)
  1. DEXAMETHASONE [Suspect]
     Indication: BRAIN NEOPLASM MALIGNANT
     Dosage: UNK
  2. THERAPEUTIC RADIOPHARMACEUTICAL (UNSPECIFIED) [Suspect]
     Indication: BRAIN NEOPLASM MALIGNANT
     Dosage: UNK
  3. TEMOZOLOMIDE [Concomitant]
     Indication: BRAIN NEOPLASM MALIGNANT
     Dosage: 90 MG/M2, UNK

REACTIONS (1)
  - Herpes simplex encephalitis [Unknown]
